FAERS Safety Report 19228165 (Version 2)
Quarter: 2021Q4

REPORT INFORMATION
  Report Type: Spontaneous
  Country: IT (occurrence: IT)
  Receive Date: 20210507
  Receipt Date: 20211103
  Transmission Date: 20220304
  Serious: Yes (Other)
  Sender: FDA-Public Use
  Company Number: IT-SA-2021SA144972

PATIENT
  Age: 37 Year
  Sex: Female

DRUGS (1)
  1. ALEMTUZUMAB [Suspect]
     Active Substance: ALEMTUZUMAB
     Indication: Multiple sclerosis
     Dosage: UNK, QCY
     Dates: start: 201601, end: 201601

REACTIONS (2)
  - Cytomegalovirus infection [Unknown]
  - Drug exposure before pregnancy [Unknown]

NARRATIVE: CASE EVENT DATE: 20160101
